FAERS Safety Report 19082109 (Version 2)
Quarter: 2021Q4

REPORT INFORMATION
  Report Type: Report from Study
  Country: US (occurrence: US)
  Receive Date: 20210401
  Receipt Date: 20211201
  Transmission Date: 20220304
  Serious: Yes (Other)
  Sender: FDA-Public Use
  Company Number: US-NOVARTISPH-NVSC2021US065532

PATIENT
  Sex: Male

DRUGS (2)
  1. AFINITOR [Suspect]
     Active Substance: EVEROLIMUS
     Indication: Product used for unknown indication
     Dosage: UNK
     Route: 065
  2. LUTATHERA [Suspect]
     Active Substance: LUTETIUM OXODOTREOTIDE LU-177
     Indication: Product used for unknown indication
     Route: 065

REACTIONS (5)
  - Malignant neoplasm progression [Unknown]
  - Renal impairment [Unknown]
  - Drug ineffective [Unknown]
  - Red blood cell count abnormal [Unknown]
  - Haemoglobin abnormal [Unknown]
